FAERS Safety Report 4926379-X (Version None)
Quarter: 2006Q1

REPORT INFORMATION
  Report Type: 
  Country: None (occurrence: None)
  Receive Date: 20060228
  Receipt Date: 20051108
  Transmission Date: 20060701
  Serious: No
  Sender: FDA-Public Use
  Company Number: US-GLAXOSMITHKLINE-A0581445A

PATIENT
  Age: 17 Year
  Sex: Female

DRUGS (6)
  1. LAMICTAL [Suspect]
     Indication: BIPOLAR DISORDER
     Dosage: 50MG UNKNOWN
     Route: 048
     Dates: start: 20051001, end: 20051101
  2. BIRTH CONTROL [Concomitant]
  3. ACCUTANE [Concomitant]
  4. ADDERALL XR 10 [Concomitant]
  5. SEROQUEL [Concomitant]
     Route: 065
  6. PRILOSEC [Concomitant]

REACTIONS (1)
  - RASH [None]
